FAERS Safety Report 4355496-0 (Version None)
Quarter: 2004Q2

REPORT INFORMATION
  Report Type: 
  Country: None (occurrence: None)
  Receive Date: 20040505
  Receipt Date: 20040426
  Transmission Date: 20050107
  Serious: Yes (Hospitalization)
  Sender: FDA-Public Use
  Company Number: 2004005905

PATIENT
  Age: 17 Year
  Sex: Female

DRUGS (5)
  1. ZITHROMAX [Suspect]
     Indication: INFECTION
     Dosage: 500 MG (DAILY), ORAL
     Route: 048
     Dates: start: 20040121, end: 20040122
  2. CARBOCISTEINE (CARBOCISTEINE) [Suspect]
     Indication: ILL-DEFINED DISORDER
     Dosage: 1500 MG, ORAL
     Route: 048
     Dates: start: 20040121, end: 20040122
  3. TIPEPIDINE HIBENZATE (TIPEPIDINE HIBENZATE) [Suspect]
     Indication: ILL-DEFINED DISORDER
     Dosage: (TID), ORAL
     Route: 048
     Dates: start: 20040121, end: 20040122
  4. TEPRENONE (TEPRENONE) [Concomitant]
  5. OTHER COLD COMBINATION PREPARATIONS (OTHER COLD COMBINATION PREPARATIO [Concomitant]

REACTIONS (7)
  - BACTERIAL INFECTION [None]
  - EXANTHEM [None]
  - FEELING HOT [None]
  - NAUSEA [None]
  - OEDEMA PERIPHERAL [None]
  - SCRATCH [None]
  - VIRAL INFECTION [None]
